FAERS Safety Report 5956544-4 (Version None)
Quarter: 2008Q4

REPORT INFORMATION
  Report Type: 
  Country: None (occurrence: None)
  Receive Date: 20081118
  Receipt Date: 20081111
  Transmission Date: 20090506
  Serious: Yes (Other)
  Sender: FDA-Public Use
  Company Number: US-ASTRAZENECA-2008UW11650

PATIENT
  Age: 77 Year
  Sex: Male
  Weight: 68 kg

DRUGS (10)
  1. CRESTOR [Suspect]
     Indication: BLOOD CHOLESTEROL INCREASED
     Route: 048
     Dates: start: 20080101, end: 20080801
  2. CRESTOR [Suspect]
     Route: 048
     Dates: start: 20080101
  3. GLUCOTROL XL [Concomitant]
  4. METFORMIN HCL [Concomitant]
  5. METOPROLOL TARTRATE [Concomitant]
  6. ASPIRIN [Concomitant]
     Route: 048
  7. PACERON [Concomitant]
  8. NEXIUM [Concomitant]
     Route: 048
  9. SPIRIVA [Concomitant]
  10. CENTRUM [Concomitant]

REACTIONS (2)
  - CORONARY ARTERY BYPASS [None]
  - MYALGIA [None]
